FAERS Safety Report 6202568-1 (Version None)
Quarter: 2009Q2

REPORT INFORMATION
  Report Type: 
  Country: None (occurrence: None)
  Receive Date: 20090526
  Receipt Date: 20090513
  Transmission Date: 20091009
  Serious: Yes (Other)
  Sender: FDA-Public Use
  Company Number: GB-AMGEN-US348297

PATIENT
  Sex: Female

DRUGS (2)
  1. ENBREL [Suspect]
     Indication: DRUG USE FOR UNKNOWN INDICATION
     Dosage: UNKNOWN
     Dates: start: 20080101
  2. METHOTREXATE [Suspect]
     Dosage: UNKNOWN
     Route: 058
     Dates: start: 19940101

REACTIONS (2)
  - ANAPHYLACTIC REACTION [None]
  - DISEASE PROGRESSION [None]
